FAERS Safety Report 9056921 (Version 3)
Quarter: 2013Q1

REPORT INFORMATION
  Report Type: Spontaneous
  Country: JP (occurrence: JP)
  Receive Date: 20130201
  Receipt Date: 20130314
  Transmission Date: 20140127
  Serious: No
  Sender: FDA-Public Use
  Company Number: JP-B.I. PHARMACEUTICALS,INC./RIDGEFIELD-2013-BI-02180NB

PATIENT
  Age: 90 None
  Sex: Male
  Weight: 55 kg

DRUGS (9)
  1. TRAZENTA [Suspect]
     Indication: TYPE 2 DIABETES MELLITUS
     Dosage: 5 MG
     Route: 048
     Dates: start: 20130111, end: 20130113
  2. FRANDOL [Suspect]
     Dosage: 40 MG
     Route: 062
  3. LIPIDIL [Suspect]
     Dosage: 80 MG
     Route: 048
  4. MARZULENE [Concomitant]
     Dosage: 1.5 G
     Route: 048
  5. MAGMITT [Concomitant]
     Indication: CONSTIPATION
     Dosage: 250 MG
     Route: 048
  6. TAKEPRON [Concomitant]
     Dosage: 15 MG
     Route: 048
  7. CELECOX [Concomitant]
     Route: 048
  8. METHYCOBAL [Concomitant]
     Route: 048
  9. ARGAMATE [Concomitant]
     Route: 048

REACTIONS (1)
  - Face oedema [Recovered/Resolved]
